FAERS Safety Report 4767361-5 (Version None)
Quarter: 2005Q3

REPORT INFORMATION
  Report Type: 
  Country: None (occurrence: None)
  Receive Date: 20050913
  Receipt Date: 20050902
  Transmission Date: 20060218
  Serious: Yes (Hospitalization)
  Sender: FDA-Public Use
  Company Number: FR-ROCHE-416320

PATIENT
  Age: 14 Year
  Sex: Female
  Weight: 64 kg

DRUGS (6)
  1. ROCEPHIN [Suspect]
     Indication: DRUG USE FOR UNKNOWN INDICATION
     Route: 042
     Dates: start: 20050711, end: 20050724
  2. ADVIL [Suspect]
     Indication: DRUG USE FOR UNKNOWN INDICATION
     Route: 048
     Dates: start: 20050710, end: 20050710
  3. AMIKLIN [Suspect]
     Indication: DRUG USE FOR UNKNOWN INDICATION
     Route: 042
     Dates: start: 20050711, end: 20050711
  4. VOGALENE [Concomitant]
     Route: 048
     Dates: start: 20050710, end: 20050710
  5. EFFERALGAN [Concomitant]
     Route: 048
     Dates: start: 20050710, end: 20050710
  6. BELLADONE [Concomitant]
     Route: 048
     Dates: start: 20050710, end: 20050710

REACTIONS (6)
  - INFLAMMATION [None]
  - PYELONEPHRITIS ACUTE [None]
  - PYREXIA [None]
  - RENAL FAILURE ACUTE [None]
  - RHABDOMYOLYSIS [None]
  - SEPSIS [None]
